FAERS Safety Report 6126281-4 (Version None)
Quarter: 2009Q1

REPORT INFORMATION
  Report Type: 
  Country: None (occurrence: None)
  Receive Date: 20090320
  Receipt Date: 20090306
  Transmission Date: 20090719
  Serious: Yes (Death, Other)
  Sender: FDA-Public Use
  Company Number: GB-ROCHE-620163

PATIENT
  Age: 60 Year
  Sex: Female

DRUGS (1)
  1. XELODA [Suspect]
     Indication: COLON CANCER
     Route: 065

REACTIONS (3)
  - DEATH [None]
  - ILL-DEFINED DISORDER [None]
  - NEUTROPENIA [None]
